FAERS Safety Report 5955965-3 (Version None)
Quarter: 2008Q4

REPORT INFORMATION
  Report Type: 
  Country: None (occurrence: None)
  Receive Date: 20081112
  Receipt Date: 20081030
  Transmission Date: 20090506
  Serious: Yes (Death, Hospitalization, Other)
  Sender: FDA-Public Use
  Company Number: 234430K07USA

PATIENT
  Age: 74 Year
  Sex: Male
  Weight: 95 kg

DRUGS (7)
  1. REBIF [Suspect]
     Indication: MULTIPLE SCLEROSIS
     Dosage: 44 MCG, 3 IN 1 WEEKS, SUBCUTANEOUS
     Route: 058
     Dates: start: 20040915, end: 20080125
  2. TOPROL-XL [Concomitant]
  3. AVANDAMET [Concomitant]
  4. LASIX [Concomitant]
  5. BACLOFEN [Concomitant]
  6. NEURONTIN [Concomitant]
  7. COUMADIN [Concomitant]

REACTIONS (10)
  - ACUTE MYOCARDIAL INFARCTION [None]
  - ANAEMIA [None]
  - ARTERIAL RUPTURE [None]
  - ASTHENIA [None]
  - ATRIAL FIBRILLATION [None]
  - FALL [None]
  - HIP FRACTURE [None]
  - INJECTION SITE HAEMATOMA [None]
  - NASOPHARYNGITIS [None]
  - TYPE 2 DIABETES MELLITUS [None]
